FAERS Safety Report 8319778-X (Version None)
Quarter: 2012Q2

REPORT INFORMATION
  Report Type: 
  Country: None (occurrence: None)
  Receive Date: 20120427
  Receipt Date: 20120421
  Transmission Date: 20120825
  Serious: Yes (Life-Threatening, Hospitalization)
  Sender: FDA-Public Use
  Company Number: US-NOVOPROD-340970

PATIENT
  Age: 53 Year
  Sex: Female
  Weight: 87.7 kg

DRUGS (10)
  1. FELODIPINE [Concomitant]
     Indication: HYPERTENSION
     Dosage: 5 MG, QD
     Dates: start: 20090224
  2. INSULIN DETEMIR FLEXPEN [Suspect]
     Indication: TYPE 2 DIABETES MELLITUS
     Dosage: 105 U, QD
     Route: 058
     Dates: start: 20110526, end: 20111222
  3. METFORMIN HCL [Concomitant]
     Indication: TYPE 2 DIABETES MELLITUS
     Dosage: 2000 MG, QD
     Route: 048
  4. HYZAAR [Concomitant]
     Indication: HYPERTENSION
     Dosage: 100/25 MG, QD
     Route: 048
     Dates: start: 20090309
  5. SIMVASTATIN [Concomitant]
     Indication: HYPERLIPIDAEMIA
     Dosage: 80 MG, QD
     Route: 048
     Dates: start: 20090216
  6. NOVORAPID FLEXPEN [Suspect]
     Dosage: UNK
     Dates: start: 20111212, end: 20120109
  7. KLOR-CON [Concomitant]
     Indication: HYPERTENSION
     Dosage: 20 MEQ, QD
     Route: 048
     Dates: start: 20090501
  8. PREVACID [Concomitant]
     Indication: GASTROOESOPHAGEAL REFLUX DISEASE
     Dosage: 30 MG, QD
     Route: 048
     Dates: start: 20100301
  9. NOVORAPID FLEXPEN [Suspect]
     Indication: TYPE 2 DIABETES MELLITUS
     Dosage: 97 U, QD
     Route: 058
     Dates: start: 20110803
  10. EFFEXOR [Concomitant]
     Indication: DEPRESSION
     Dosage: 300 MG, QD
     Dates: start: 20110920

REACTIONS (1)
  - STREPTOCOCCAL INFECTION [None]
